FAERS Safety Report 6218973-3 (Version None)
Quarter: 2009Q2

REPORT INFORMATION
  Report Type: 
  Country: None (occurrence: None)
  Receive Date: 20090608
  Receipt Date: 20090527
  Transmission Date: 20091009
  Serious: Yes (Other)
  Sender: FDA-Public Use
  Company Number: PHBS2007BR09493

PATIENT
  Age: 63 Year
  Sex: Female
  Weight: 60 kg

DRUGS (4)
  1. FEMARA [Suspect]
     Dosage: 2.5 MG/D
     Route: 048
     Dates: start: 20040101
  2. MAREVAN [Concomitant]
     Indication: ANTICOAGULANT THERAPY
     Dosage: 0.5 TABLET/D
     Route: 048
  3. CRESTOR [Concomitant]
     Indication: BLOOD CHOLESTEROL
     Dosage: 10 MG/D
     Route: 048
  4. ESPIRONOLACTONA [Concomitant]
     Indication: POLYURIA
     Dosage: 1 TABLET/D
     Route: 048

REACTIONS (9)
  - ABDOMINAL PAIN [None]
  - BONE DENSITY DECREASED [None]
  - BONE PAIN [None]
  - DIZZINESS [None]
  - FIBROMYALGIA [None]
  - HEADACHE [None]
  - INFLAMMATION [None]
  - LABYRINTHITIS [None]
  - PAIN IN EXTREMITY [None]
